FAERS Safety Report 14672037 (Version 1)
Quarter: 2018Q1

REPORT INFORMATION
  Report Type: Spontaneous
  Country: US (occurrence: US)
  Receive Date: 20180323
  Receipt Date: 20180323
  Transmission Date: 20180509
  Serious: Yes (Other)
  Sender: FDA-Public Use
  Company Number: US-HORIZON-PRE-0123-2018

PATIENT
  Age: 13 Year
  Sex: Female

DRUGS (3)
  1. CICLOSPORIN [Suspect]
     Active Substance: CYCLOSPORINE
     Indication: IMMUNOSUPPRESSANT DRUG THERAPY
     Dosage: 175 MG (3.5 MG/KG) TWICE DAILY
     Route: 048
  2. PREDNISONE. [Suspect]
     Active Substance: PREDNISONE
     Indication: IMMUNOSUPPRESSANT DRUG THERAPY
     Dosage: 30 MG (0.6 MG/KG) DAILY
     Route: 048
  3. RILONACEPT [Suspect]
     Active Substance: RILONACEPT
     Indication: IMMUNOSUPPRESSANT DRUG THERAPY
     Dosage: 110 MG (2.2 MG/KG) WEEKLY
     Route: 058

REACTIONS (1)
  - Hepatitis [Unknown]
